FAERS Safety Report 19009725 (Version 4)
Quarter: 2022Q4

REPORT INFORMATION
  Report Type: Report from Study
  Country: JP (occurrence: JP)
  Receive Date: 20210316
  Receipt Date: 20221021
  Transmission Date: 20230113
  Serious: Yes (Disabling)
  Sender: FDA-Public Use
  Company Number: JP-RECORDATI RARE DISEASES INC.-2020004821

PATIENT
  Sex: Male
  Weight: 1.06 kg

DRUGS (12)
  1. NEOPROFEN [Suspect]
     Active Substance: IBUPROFEN LYSINE
     Indication: Patent ductus arteriosus
     Dosage: 10 MILLIGRAM, QD
     Route: 042
     Dates: start: 20190521, end: 20190521
  2. NEOPROFEN [Suspect]
     Active Substance: IBUPROFEN LYSINE
     Dosage: 5 MILLIGRAM, QD
     Route: 042
     Dates: start: 20190522, end: 20190522
  3. NEOPROFEN [Suspect]
     Active Substance: IBUPROFEN LYSINE
     Dosage: 5 MILLIGRAM, QD
     Route: 042
     Dates: start: 20190523, end: 20190523
  4. NEOPROFEN [Suspect]
     Active Substance: IBUPROFEN LYSINE
     Dosage: 10 MILLIGRAM, QD
     Route: 042
     Dates: start: 20190609, end: 20190609
  5. NEOPROFEN [Suspect]
     Active Substance: IBUPROFEN LYSINE
     Dosage: 5 MILLIGRAM, QD
     Route: 042
     Dates: start: 20190610, end: 20190610
  6. SURFACTEN [Concomitant]
     Indication: Neonatal respiratory distress syndrome
     Dosage: UNK, UNK
     Route: 037
     Dates: start: 20190521, end: 20190521
  7. MENATETRENONE [Concomitant]
     Active Substance: MENATETRENONE
     Indication: Vitamin supplementation
     Dosage: UNK, UNK
     Route: 042
     Dates: start: 20190521, end: 20190521
  8. AMPICILLIN SODIUM [Concomitant]
     Active Substance: AMPICILLIN SODIUM
     Indication: Prophylaxis
     Dosage: UNK, UNK
     Route: 042
     Dates: start: 20190521, end: 20190523
  9. CAFFEINE [Concomitant]
     Active Substance: CAFFEINE
     Indication: Apnoeic attack
     Dosage: UNK, UNK
     Route: 042
     Dates: start: 20190521, end: 20190629
  10. SODIUM BICARBONATE [Concomitant]
     Active Substance: SODIUM BICARBONATE
     Indication: Metabolic acidosis
     Dosage: UNK, UNK
     Route: 042
     Dates: start: 20190522, end: 20190522
  11. PHENOBARBITAL [Concomitant]
     Active Substance: PHENOBARBITAL
     Indication: Sedation
     Dosage: UNK, UNK
     Route: 042
     Dates: start: 20190524, end: 20190524
  12. HYDROCORTISONE SODIUM SUCCINATE [Concomitant]
     Active Substance: HYDROCORTISONE SODIUM SUCCINATE
     Indication: Bronchopulmonary dysplasia
     Dosage: UNK, UNK
     Route: 042
     Dates: start: 20190530, end: 20190618

REACTIONS (4)
  - Bronchopulmonary dysplasia [Recovered/Resolved]
  - Hyponatraemia [Recovered/Resolved]
  - Abdominal distension [Recovered/Resolved]
  - Blood creatinine increased [Recovered/Resolved]

NARRATIVE: CASE EVENT DATE: 20190522
